FAERS Safety Report 15335070 (Version 2)
Quarter: 2018Q4

REPORT INFORMATION
  Report Type: Spontaneous
  Country: CA (occurrence: CA)
  Receive Date: 20180830
  Receipt Date: 20180914
  Transmission Date: 20190204
  Serious: Yes (Life-Threatening, Hospitalization)
  Sender: FDA-Public Use
  Company Number: CA-TEVA-2018-CA-948486

PATIENT
  Age: 13 Year
  Sex: Female
  Weight: 60 kg

DRUGS (1)
  1. ACETAMINOPHEN TABLETS,325 MG [Suspect]
     Active Substance: ACETAMINOPHEN
     Route: 065

REACTIONS (17)
  - Metabolic encephalopathy [Recovering/Resolving]
  - Pain [Recovering/Resolving]
  - Hypotension [Recovering/Resolving]
  - Acute hepatic failure [Recovering/Resolving]
  - Hypertonia [Recovering/Resolving]
  - Posturing [Recovering/Resolving]
  - Brain oedema [Recovering/Resolving]
  - Unresponsive to stimuli [Recovering/Resolving]
  - Intracranial pressure increased [Recovering/Resolving]
  - Pupil fixed [Recovering/Resolving]
  - Hypotonia [Recovering/Resolving]
  - Coagulopathy [Recovering/Resolving]
  - Decerebrate posture [Recovering/Resolving]
  - IIIrd nerve paralysis [Not Recovered/Not Resolved]
  - Toxicity to various agents [Recovering/Resolving]
  - VIth nerve paralysis [Not Recovered/Not Resolved]
  - Overdose [Recovering/Resolving]
